FAERS Safety Report 17995284 (Version 1)
Quarter: 2020Q3

REPORT INFORMATION
  Report Type: Spontaneous
  Country: US (occurrence: US)
  Receive Date: 20200708
  Receipt Date: 20200708
  Transmission Date: 20201103
  Serious: Yes (Other)
  Sender: FDA-Public Use
  Company Number: None

PATIENT
  Age: 27 Year
  Sex: Female
  Weight: 101.15 kg

DRUGS (1)
  1. NEXPLANON [Suspect]
     Active Substance: ETONOGESTREL
     Dates: start: 20200701, end: 20200708

REACTIONS (4)
  - Hypoaesthesia [None]
  - Contusion [None]
  - Injection site pain [None]
  - Paraesthesia [None]

NARRATIVE: CASE EVENT DATE: 20200701
